FAERS Safety Report 15022377 (Version 1)
Quarter: 2018Q2

REPORT INFORMATION
  Report Type: Spontaneous
  Country: DE (occurrence: DE)
  Receive Date: 20180618
  Receipt Date: 20180618
  Transmission Date: 20180711
  Serious: Yes (Hospitalization)
  Sender: FDA-Public Use
  Company Number: PHHY2016DE186865

PATIENT
  Age: 80 Year
  Sex: Male

DRUGS (2)
  1. METOPROLOL. [Suspect]
     Active Substance: METOPROLOL
     Indication: CARDIAC FAILURE CHRONIC
     Route: 065
  2. PROCORALAN [Suspect]
     Active Substance: IVABRADINE
     Indication: CARDIAC FAILURE CHRONIC
     Dosage: 5 MG, BID (DAILY DOSE: 10 MG MILLIGRAM(S) EVERY DAY)
     Route: 065
     Dates: start: 2015, end: 201512

REACTIONS (5)
  - Cardiac failure [Recovered/Resolved]
  - Sinus bradycardia [Recovered/Resolved]
  - Cardiac failure [Recovered/Resolved]
  - Drug prescribing error [Recovered/Resolved]
  - Sinus bradycardia [Recovered/Resolved]

NARRATIVE: CASE EVENT DATE: 2015
